FAERS Safety Report 8443855-6 (Version None)
Quarter: 2012Q2

REPORT INFORMATION
  Report Type: 
  Country: None (occurrence: None)
  Receive Date: 20120618
  Receipt Date: 20120607
  Transmission Date: 20120825
  Serious: Yes (Other)
  Sender: FDA-Public Use
  Company Number: US-US-EMD SERONO, INC.-7139168

PATIENT
  Sex: Female

DRUGS (2)
  1. REBIF [Suspect]
     Indication: MULTIPLE SCLEROSIS
     Route: 058
     Dates: start: 20040607
  2. METFORMIN HCL [Concomitant]
     Indication: DIABETES MELLITUS

REACTIONS (9)
  - LOSS OF CONSCIOUSNESS [None]
  - GOITRE [None]
  - BLOOD GLUCOSE INCREASED [None]
  - FALL [None]
  - RENAL MASS [None]
  - ASTHENIA [None]
  - CRYING [None]
  - MULTIPLE SCLEROSIS [None]
  - FATIGUE [None]
